FAERS Safety Report 12541759 (Version 1)
Quarter: 2016Q3

REPORT INFORMATION
  Report Type: Report from Study
  Country: BR (occurrence: BR)
  Receive Date: 20160708
  Receipt Date: 20160708
  Transmission Date: 20161109
  Serious: Yes (Hospitalization, Other)
  Sender: FDA-Public Use
  Company Number: BR-ABBVIE-16P-020-1671435-00

PATIENT
  Age: 82 Year
  Sex: Female
  Weight: 53.9 kg

DRUGS (11)
  1. VITAMIN D3 [Concomitant]
     Active Substance: CHOLECALCIFEROL
     Indication: MINERAL SUPPLEMENTATION
     Route: 048
     Dates: start: 2012
  2. RITMONORM [Suspect]
     Active Substance: PROPAFENONE HYDROCHLORIDE
     Route: 048
     Dates: start: 2014
  3. TECTA [Concomitant]
     Active Substance: PANTOPRAZOLE MAGNESIUM
     Indication: GASTRIC DISORDER
     Dosage: DAILY DOSE: 40 MILLIGRAM; FASTING.
     Route: 048
     Dates: start: 2012
  4. SIMVASTATIN. [Concomitant]
     Active Substance: SIMVASTATIN
     Indication: BLOOD CHOLESTEROL ABNORMAL
     Route: 048
     Dates: start: 2006
  5. RITMONORM [Suspect]
     Active Substance: PROPAFENONE HYDROCHLORIDE
     Indication: ARRHYTHMIA
     Route: 048
     Dates: start: 2011
  6. CORUS [Concomitant]
     Active Substance: LOSARTAN POTASSIUM
     Route: 048
  7. CALCIUM [Concomitant]
     Active Substance: CALCIUM
     Indication: NUTRITIONAL SUPPLEMENTATION
     Dosage: DAILY DOSE: 1 TABLET; AT LUNCH
     Route: 048
     Dates: start: 2013
  8. WHEY PROTEIN [Concomitant]
     Indication: NUTRITIONAL SUPPLEMENTATION
     Dosage: WHEY PROTEIN ISOLATE FROM MILK; DAILY DOSE: 1 MEASURE DOSE
     Route: 048
  9. AAS [Concomitant]
     Active Substance: ASPIRIN
     Indication: ANTICOAGULANT THERAPY
     Route: 048
     Dates: start: 2006
  10. CORUS [Concomitant]
     Active Substance: LOSARTAN POTASSIUM
     Indication: HYPERTENSION
     Dosage: DAILY DOSE: 50 MILLIGRAM; MORNING
     Route: 048
     Dates: start: 2006
  11. CREON [Suspect]
     Active Substance: PANCRELIPASE AMYLASE\PANCRELIPASE LIPASE\PANCRELIPASE PROTEASE
     Indication: PANCREATIC DISORDER
     Route: 048
     Dates: start: 2012

REACTIONS (9)
  - Abdominal pain [Recovered/Resolved]
  - Dehydration [Recovered/Resolved]
  - Diarrhoea [Recovered/Resolved]
  - Helicobacter infection [Not Recovered/Not Resolved]
  - Basal cell carcinoma [Not Recovered/Not Resolved]
  - Blood chromogranin A increased [Unknown]
  - Nasal cavity cancer [Not Recovered/Not Resolved]
  - Pancreatic disorder [Recovered/Resolved]
  - Blood gastrin increased [Unknown]

NARRATIVE: CASE EVENT DATE: 2012
